FAERS Safety Report 7062256-9 (Version None)
Quarter: 2010Q4

REPORT INFORMATION
  Report Type: 
  Country: None (occurrence: None)
  Receive Date: 20101026
  Receipt Date: 20101015
  Transmission Date: 20110411
  Serious: Yes (Other)
  Sender: FDA-Public Use
  Company Number: US-MYLANLABS-2010S1017345

PATIENT
  Age: 58 Year
  Sex: Female
  Weight: 61.24 kg

DRUGS (10)
  1. AMBIEN [Suspect]
     Indication: INSOMNIA
     Route: 048
     Dates: start: 20080503, end: 20090201
  2. HYDROCODONE [Suspect]
  3. PROPOXYPHENE HYDROCHLORIDE [Suspect]
  4. FLURAZEPAM [Suspect]
  5. ALCOHOL [Suspect]
  6. TRAZODONE [Suspect]
  7. LASIX [Concomitant]
  8. TYLENOL PM [Concomitant]
  9. SYNTHROID [Concomitant]
  10. PROTONIX [Concomitant]

REACTIONS (7)
  - HALLUCINATION, VISUAL [None]
  - IMPAIRED DRIVING ABILITY [None]
  - OVERDOSE [None]
  - PIRIFORMIS SYNDROME [None]
  - SLEEP TALKING [None]
  - SOMNAMBULISM [None]
  - TRANSIENT GLOBAL AMNESIA [None]
